FAERS Safety Report 7713499-X (Version None)
Quarter: 2011Q3

REPORT INFORMATION
  Report Type: 
  Country: None (occurrence: None)
  Receive Date: 20110826
  Receipt Date: 20110823
  Transmission Date: 20111222
  Serious: Yes (Hospitalization)
  Sender: FDA-Public Use
  Company Number: JP-EISAI INC-E2080-00404-CLI-JP

PATIENT
  Sex: Male
  Weight: 19 kg

DRUGS (10)
  1. ZONISAMIDE [Concomitant]
     Indication: LENNOX-GASTAUT SYNDROME
     Route: 048
     Dates: start: 20101215
  2. PHENOBARBITAL TAB [Interacting]
     Route: 048
     Dates: start: 20101123, end: 20110817
  3. RUFINAMIDE [Suspect]
     Indication: LENNOX-GASTAUT SYNDROME
     Route: 048
     Dates: start: 20110503, end: 20110504
  4. VALPROATE SODIUM [Interacting]
     Route: 048
     Dates: start: 20110819
  5. RUFINAMIDE [Interacting]
     Route: 048
     Dates: start: 20110509
  6. PHENOBARBITAL TAB [Interacting]
     Indication: LENNOX-GASTAUT SYNDROME
     Route: 048
     Dates: start: 20010201
  7. RUFINAMIDE [Interacting]
     Route: 048
     Dates: start: 20110505, end: 20110506
  8. VALPROATE SODIUM [Interacting]
     Indication: LENNOX-GASTAUT SYNDROME
     Route: 048
     Dates: start: 20100607, end: 20110816
  9. RUFINAMIDE [Interacting]
     Route: 048
     Dates: start: 20110507, end: 20110508
  10. VALPROATE SODIUM [Interacting]
     Route: 048
     Dates: start: 20110817, end: 20110818

REACTIONS (2)
  - DRUG INTERACTION [None]
  - STATUS EPILEPTICUS [None]
